FAERS Safety Report 4471073-5 (Version None)
Quarter: 2004Q4

REPORT INFORMATION
  Report Type: 
  Country: None (occurrence: None)
  Receive Date: 20041011
  Receipt Date: 20040927
  Transmission Date: 20050328
  Serious: Yes (Hospitalization)
  Sender: FDA-Public Use
  Company Number: DEWYE066927SEP04

PATIENT
  Sex: Male
  Weight: 75 kg

DRUGS (3)
  1. ENBREL [Suspect]
     Indication: ANKYLOSING SPONDYLITIS
     Route: 058
  2. VIOXX [Concomitant]
     Dosage: UNKNOWN DOSE WHEN NEEDED
     Route: 048
  3. VALORON N [Concomitant]
     Dosage: UNKNOWN DOSE WHEN NEEDED
     Route: 048

REACTIONS (1)
  - IRIDOCYCLITIS [None]
